FAERS Safety Report 10056504 (Version 5)
Quarter: 2014Q2

REPORT INFORMATION
  Report Type: Report from Study
  Country: SG (occurrence: SG)
  Receive Date: 20140403
  Receipt Date: 20140519
  Transmission Date: 20141212
  Serious: Yes (Hospitalization, Other)
  Sender: FDA-Public Use
  Company Number: SG-BAYER-2014-022896

PATIENT
  Age: 53 Year
  Sex: Female
  Weight: 75 kg

DRUGS (49)
  1. RIOCIGUAT (GUANYLATE CYCLASE STIMULATOR) [Suspect]
     Indication: PULMONARY HYPERTENSION
     Dosage: UNK
     Dates: start: 20111209
  2. RIOCIGUAT (GUANYLATE CYCLASE STIMULATOR) [Suspect]
     Indication: LEFT VENTRICULAR DYSFUNCTION
     Dosage: 2 MG, TID
     Route: 048
     Dates: start: 20140108
  3. RIOCIGUAT (GUANYLATE CYCLASE STIMULATOR) [Suspect]
     Indication: PULMONARY HYPERTENSION
     Dosage: 2 MG, TID
     Route: 048
     Dates: start: 20140108
  4. RIOCIGUAT (GUANYLATE CYCLASE STIMULATOR) [Suspect]
     Indication: PULMONARY HYPERTENSION
     Dosage: 2 MG, TID
     Route: 048
     Dates: start: 20140108
  5. RIOCIGUAT (GUANYLATE CYCLASE STIMULATOR) [Suspect]
     Indication: PULMONARY HYPERTENSION
     Dosage: 2 MG, TID
     Route: 048
     Dates: start: 20140414
  6. RIOCIGUAT (GUANYLATE CYCLASE STIMULATOR) [Suspect]
     Indication: PULMONARY HYPERTENSION
     Dosage: 2 MG, TID
     Route: 048
     Dates: start: 20140414
  7. RIOCIGUAT (GUANYLATE CYCLASE STIMULATOR) [Suspect]
     Indication: PULMONARY HYPERTENSION
     Dosage: 2 MG, TID
     Route: 048
     Dates: start: 20140414
  8. SIMVASTATIN [Concomitant]
     Indication: HYPERLIPIDAEMIA
     Dosage: 40 MG, QD EVERY NIGHT
     Route: 048
     Dates: start: 20040731
  9. ASPIRIN CARDIO [Concomitant]
     Dosage: 100 MG, OM
     Route: 048
     Dates: start: 20040731
  10. NOVOMIX [INSULIN ASPART] [Concomitant]
     Indication: DIABETIC NEPHROPATHY
     Dosage: DAILY DOSE 70 IU
     Route: 058
     Dates: start: 20110625
  11. GLIPIZIDE [Concomitant]
     Indication: DIABETES MELLITUS
     Dosage: 5 MG, BID
     Route: 048
     Dates: start: 20121111, end: 20131128
  12. GLIPIZIDE [Concomitant]
     Indication: DIABETES MELLITUS
     Dosage: 7.5 MG OM
     Route: 048
     Dates: start: 20131126, end: 20140207
  13. GLIPIZIDE [Concomitant]
     Indication: DIABETES MELLITUS
     Dosage: 10 MG OM, 5 MG ON
     Route: 048
     Dates: start: 20140207
  14. GLIPIZIDE [Concomitant]
     Indication: DIABETES MELLITUS
     Dosage: 7.5 MG, BID
     Route: 048
     Dates: start: 20140418
  15. CARVEDILOL [Concomitant]
     Indication: CARDIAC FAILURE
     Dosage: 6.25 MG, BID
     Route: 048
     Dates: start: 20121111
  16. CARVEDILOL [Concomitant]
     Indication: CARDIAC FAILURE
     Dosage: 3125 MG, BID
     Dates: start: 20110625, end: 20121111
  17. LOSARTAN [Concomitant]
     Indication: CARDIAC FAILURE
     Dosage: 100 MG, QD
     Route: 048
     Dates: start: 20110625, end: 20120130
  18. LOSARTAN [Concomitant]
     Indication: CARDIAC FAILURE
     Dosage: 50 MG, QD
     Route: 048
     Dates: start: 20120202, end: 20120701
  19. LOSARTAN [Concomitant]
     Indication: CARDIAC FAILURE
     Dosage: 100 MG, QD
     Route: 048
     Dates: start: 20120701, end: 20120706
  20. LOSARTAN [Concomitant]
     Indication: CARDIAC FAILURE
     Dosage: 100 MG, QD
     Route: 048
     Dates: start: 20120705, end: 20121110
  21. LOSARTAN [Concomitant]
     Indication: CARDIAC FAILURE
     Dosage: 25 MG, OM
     Dates: start: 20121111, end: 20121204
  22. LOSARTAN [Concomitant]
     Indication: CARDIAC FAILURE
     Dosage: 25 MG, OM
     Route: 048
     Dates: start: 20121210
  23. METFORMIN [Concomitant]
     Indication: CARDIAC FAILURE
     Dosage: 500 MG, BID
     Route: 048
     Dates: start: 20121210
  24. METFORMIN [Concomitant]
     Indication: DIABETES MELLITUS
     Dosage: 850 MG, BID
     Route: 048
     Dates: start: 20131126
  25. OMEPRAZOLE [Concomitant]
     Indication: PROPHYLAXIS
     Dosage: 20 MG, OM
     Route: 048
     Dates: start: 20130110
  26. OMEPRAZOLE [Concomitant]
     Indication: PROPHYLAXIS
     Dosage: 20 MG, BID
     Route: 048
     Dates: start: 20140224
  27. TRAMADOL [Concomitant]
     Indication: UMBILICAL HERNIA REPAIR
     Dosage: 50 MG 6HRLY, PRN
     Dates: start: 20011017, end: 20131214
  28. FRUSEMIDE [Concomitant]
     Indication: ABDOMINAL DISTENSION
     Dosage: 20-120 MG/DAY
     Route: 042
     Dates: start: 20131214, end: 20131220
  29. FRUSEMIDE [Concomitant]
     Indication: FLUID OVERLOAD
     Dosage: 120 MG, TID
     Route: 048
     Dates: start: 20140208
  30. FRUSEMIDE [Concomitant]
     Indication: ABDOMINAL DISTENSION
     Dosage: 80 MG, QD
     Dates: start: 20110625, end: 20120130
  31. FRUSEMIDE [Concomitant]
     Indication: ABDOMINAL DISTENSION
     Dosage: 60 MG, BID
     Route: 042
     Dates: start: 20120701, end: 20120704
  32. FRUSEMIDE [Concomitant]
     Indication: ABDOMINAL DISTENSION
     Dosage: 80 MG, BID
     Route: 042
     Dates: start: 20121004, end: 20121006
  33. FRUSEMIDE [Concomitant]
     Indication: ABDOMINAL DISTENSION
     Dosage: 60 MG, BID
     Route: 042
     Dates: start: 20121006, end: 20121007
  34. FRUSEMIDE [Concomitant]
     Indication: ABDOMINAL DISTENSION
     Dosage: 40 MG, BID
     Route: 042
     Dates: start: 20140131, end: 20140131
  35. ALBUMIN [Concomitant]
     Indication: ABDOMINAL DISTENSION
     Dosage: DAILY DOSE 100 MLS
     Route: 042
     Dates: start: 20131219, end: 20131220
  36. ROCEPHINE [Concomitant]
     Indication: CHILLS
     Dosage: 1 G, BID
     Route: 042
     Dates: start: 20131220, end: 20131221
  37. FLAGYL [Concomitant]
     Indication: CHILLS
     Dosage: 500 MG 8HRLY
     Route: 042
     Dates: start: 20131221, end: 20131222
  38. IMIPENEM [Concomitant]
     Indication: BACTERAEMIA
     Dosage: 250 MG  6HRLY
     Route: 042
     Dates: start: 20131222, end: 20131231
  39. METOLAZONE [Concomitant]
     Dosage: 5 MG, BIW
     Route: 048
     Dates: start: 20120130, end: 20120209
  40. METOLAZONE [Concomitant]
     Dosage: 5 MG, BIW
     Route: 048
     Dates: start: 20121111, end: 20121204
  41. SPIRONOLACTONE [Concomitant]
     Dosage: 25 MG, OM
     Route: 048
     Dates: start: 20121111, end: 20121204
  42. TAZOBACTAM [Concomitant]
     Indication: ASCITES
     Dosage: 500 MG OM INTRAVENOUS DRIP
     Route: 042
     Dates: start: 20140208, end: 20140209
  43. TAZOBACTAM [Concomitant]
     Indication: FLUID OVERLOAD
  44. ALLOPURINOL [Concomitant]
     Indication: GOUT
     Dosage: 100 MG, OM
     Route: 048
     Dates: start: 20140227
  45. PANADEINE [Concomitant]
     Indication: ROTATOR CUFF SYNDROME
     Dosage: 2 TABLETS, TDS PM
     Route: 048
     Dates: start: 20140227
  46. COLCHICINE [Concomitant]
     Indication: GOUT
     Dosage: 500 MCG 1-2 TIMES A DAY
     Route: 048
     Dates: start: 20140227
  47. AUGMENTIN [Concomitant]
     Indication: LOWER RESPIRATORY TRACT INFECTION
     Dosage: 625 MG, BID
     Route: 041
     Dates: start: 20140410, end: 20140416
  48. RABEPRAZOLE [Concomitant]
     Indication: DUODENAL ULCER
     Dosage: 20 MG TDS
     Route: 048
     Dates: start: 20140418
  49. KETOTOP [Concomitant]
     Indication: TENDONITIS
     Dosage: ONE PATCH 12 HR
     Route: 061
     Dates: start: 20140418

REACTIONS (9)
  - Renal impairment [Recovered/Resolved]
  - Fluid overload [Recovered/Resolved]
  - Peritonitis [Recovered/Resolved]
  - Chest pain [Recovered/Resolved]
  - Spinal osteoarthritis [None]
  - Thrombocytopenia [Not Recovered/Not Resolved]
  - Generalised oedema [Unknown]
  - Cardiac failure congestive [Recovered/Resolved]
  - Lower respiratory tract infection [Not Recovered/Not Resolved]
